FAERS Safety Report 11086705 (Version 2)
Quarter: 2015Q3

REPORT INFORMATION
  Report Type: Spontaneous
  Country: US (occurrence: US)
  Receive Date: 20150504
  Receipt Date: 20150722
  Transmission Date: 20151125
  Serious: No
  Sender: FDA-Public Use
  Company Number: US-009507513-1505USA000515

PATIENT
  Sex: Female
  Weight: 82.9 kg

DRUGS (1)
  1. CARBIDOPA (+) LEVODOPA [Suspect]
     Active Substance: CARBIDOPA\LEVODOPA
     Indication: TREMOR
     Dosage: 10-100MG, QID, TOTAL DAILY DOSE: 40-400 MG
     Route: 048
     Dates: start: 20141107

REACTIONS (2)
  - Lacrimal disorder [Unknown]
  - Drug administration error [Unknown]
